FAERS Safety Report 8187414-1 (Version None)
Quarter: 2012Q1

REPORT INFORMATION
  Report Type: 
  Country: None (occurrence: None)
  Receive Date: 20120302
  Receipt Date: 20120220
  Transmission Date: 20120608
  Serious: No
  Sender: FDA-Public Use
  Company Number: 2012SP005718

PATIENT
  Age: 48 Year
  Sex: Female

DRUGS (5)
  1. PALIPERIDONE [Concomitant]
  2. OLANZAPINE [Concomitant]
  3. HALOPERIDOL [Concomitant]
  4. VALPROATE SODIUM [Concomitant]
  5. SYCREST (ASENAPINE /05706901/) [Suspect]
     Indication: BIPOLAR DISORDER
     Dosage: 5 MG;BID
     Dates: start: 20120123, end: 20120129

REACTIONS (6)
  - REFUSAL OF TREATMENT BY PATIENT [None]
  - THOUGHT BLOCKING [None]
  - HYPOTENSION [None]
  - DRUG EFFECT INCREASED [None]
  - HYPOAESTHESIA ORAL [None]
  - FEELING ABNORMAL [None]
